FAERS Safety Report 5720737-1 (Version None)
Quarter: 2008Q2

REPORT INFORMATION
  Report Type: 
  Country: None (occurrence: None)
  Receive Date: 20080429
  Receipt Date: 20080423
  Transmission Date: 20081010
  Serious: Yes (Death, Hospitalization, Other)
  Sender: FDA-Public Use
  Company Number: 10208833

PATIENT
  Age: 82 Year
  Sex: Female

DRUGS (8)
  1. MAXIPIME [Suspect]
     Indication: PSEUDOMONAS INFECTION
     Dosage: 1 GRAM + 1 GRAM IV AFTER DIALYSIS (DATES NOT SPECIFIED)
     Route: 042
     Dates: start: 19991105, end: 19991111
  2. MAXIPIME [Suspect]
     Indication: ESCHERICHIA SEPSIS
     Dosage: 1 GRAM + 1 GRAM IV AFTER DIALYSIS (DATES NOT SPECIFIED)
     Route: 042
     Dates: start: 19991105, end: 19991111
  3. CIPROFLOXACIN HCL [Concomitant]
     Route: 042
     Dates: start: 19991112, end: 19991117
  4. AUGMENTIN '125' [Concomitant]
     Route: 042
     Dates: start: 19991103, end: 19991105
  5. CORDARONE [Concomitant]
     Route: 048
     Dates: start: 19991101, end: 19991110
  6. ZANTAC [Concomitant]
     Route: 048
     Dates: start: 19991101, end: 19991110
  7. ALLOPURINOL [Concomitant]
     Route: 048
     Dates: start: 19991028, end: 19991110
  8. KAYEXALATE [Concomitant]

REACTIONS (9)
  - AGITATION [None]
  - APHASIA [None]
  - CHOREOATHETOSIS [None]
  - COMA [None]
  - CONVULSION [None]
  - DEATH [None]
  - DEPRESSED LEVEL OF CONSCIOUSNESS [None]
  - METABOLIC ENCEPHALOPATHY [None]
  - MYOCLONUS [None]
